FAERS Safety Report 5453472-8 (Version None)
Quarter: 2007Q3

REPORT INFORMATION
  Report Type: 
  Country: None (occurrence: None)
  Receive Date: 20070913
  Receipt Date: 20070829
  Transmission Date: 20080115
  Serious: Yes (Other)
  Sender: FDA-Public Use
  Company Number: 2007US002095

PATIENT
  Sex: Female

DRUGS (1)
  1. VESICARE [Suspect]
     Indication: DRUG DISPENSING ERROR
     Dosage: 5 MG, OTHER, ORAL
     Route: 048
     Dates: start: 20051201, end: 20051201

REACTIONS (4)
  - DRUG DISPENSING ERROR [None]
  - DRUG PRESCRIBING ERROR [None]
  - INJURY [None]
  - WRONG DRUG ADMINISTERED [None]
